FAERS Safety Report 25552545 (Version 1)
Quarter: 2025Q3

REPORT INFORMATION
  Report Type: Spontaneous
  Country: US (occurrence: US)
  Receive Date: 20250715
  Receipt Date: 20250715
  Transmission Date: 20251021
  Serious: No
  Sender: RANBAXY
  Company Number: US-SUN PHARMACEUTICAL INDUSTRIES LTD-2024R1-477520

PATIENT
  Sex: Male

DRUGS (1)
  1. ABIRATERONE [Suspect]
     Active Substance: ABIRATERONE
     Indication: Prostate cancer
     Route: 065

REACTIONS (6)
  - Dizziness [Unknown]
  - Depression [Unknown]
  - Drug intolerance [Unknown]
  - Hot flush [Unknown]
  - Muscle spasms [Unknown]
  - Mood altered [Unknown]
